FAERS Safety Report 25728302 (Version 1)
Quarter: 2025Q3

REPORT INFORMATION
  Report Type: Spontaneous
  Country: CA (occurrence: CA)
  Receive Date: 20250826
  Receipt Date: 20250826
  Transmission Date: 20251020
  Serious: Yes (Other)
  Sender: FRESENIUS KABI
  Company Number: CA-FreseniusKabi-FK202511607

PATIENT
  Age: 78 Year
  Sex: Male

DRUGS (1)
  1. HALOPERIDOL DECANOATE [Suspect]
     Active Substance: HALOPERIDOL DECANOATE
     Indication: Product used for unknown indication

REACTIONS (7)
  - Hallucination, visual [Unknown]
  - Labile blood pressure [Unknown]
  - Muscle spasms [Unknown]
  - Neuroleptic malignant syndrome [Unknown]
  - Pain in extremity [Unknown]
  - Pyrexia [Unknown]
  - Tachycardia [Unknown]
